FAERS Safety Report 7189781-4 (Version None)
Quarter: 2010Q4

REPORT INFORMATION
  Report Type: 
  Country: None (occurrence: None)
  Receive Date: 20101223
  Receipt Date: 20101216
  Transmission Date: 20110411
  Serious: No
  Sender: FDA-Public Use
  Company Number: US-BIOGENIDEC-2010BI044229

PATIENT
  Sex: Female

DRUGS (4)
  1. TYSABRI [Suspect]
     Indication: MULTIPLE SCLEROSIS
     Route: 042
     Dates: start: 20101006
  2. WELLBUTRIN [Concomitant]
     Indication: STRESS
     Dates: start: 20050101
  3. VESICARE [Concomitant]
     Indication: BLADDER DISORDER
  4. GABAPENTIN [Concomitant]
     Indication: MUSCULAR WEAKNESS

REACTIONS (4)
  - HEMIPARESIS [None]
  - HYPOAESTHESIA [None]
  - MULTIPLE SCLEROSIS [None]
  - POOR VENOUS ACCESS [None]
